FAERS Safety Report 4520621-5 (Version None)
Quarter: 2004Q4

REPORT INFORMATION
  Report Type: 
  Country: None (occurrence: None)
  Receive Date: 20041203
  Receipt Date: 20041118
  Transmission Date: 20050328
  Serious: Yes (Hospitalization)
  Sender: FDA-Public Use
  Company Number: 2004IM000961

PATIENT
  Age: 54 Year
  Sex: Female
  Weight: 48.5349 kg

DRUGS (8)
  1. INFERGEN [Suspect]
     Indication: HEPATITIS C
     Dosage: 9 UG; QD
     Dates: start: 20040904, end: 20041117
  2. ALLEGRA [Concomitant]
  3. WELLBUTRIN [Concomitant]
  4. AMBIEN [Concomitant]
  5. TYLENOL (CAPLET) [Concomitant]
  6. IBUPROFEN [Concomitant]
  7. PHENERGAN [Concomitant]
  8. PREMPRO [Concomitant]

REACTIONS (5)
  - BLOOD POTASSIUM DECREASED [None]
  - COMA [None]
  - DEPRESSED LEVEL OF CONSCIOUSNESS [None]
  - MEMORY IMPAIRMENT [None]
  - MUSCLE SPASMS [None]
